FAERS Safety Report 4310625-X (Version None)
Quarter: 2004Q1

REPORT INFORMATION
  Report Type: 
  Country: None (occurrence: None)
  Receive Date: 20040301
  Receipt Date: 20031030
  Transmission Date: 20041129
  Serious: No
  Sender: FDA-Public Use
  Company Number: WAES 0310USA03379

PATIENT
  Age: 60 Year
  Sex: Female
  Weight: 83.0083 kg

DRUGS (9)
  1. ZETIA [Suspect]
     Indication: HYPERLIPIDAEMIA
     Dosage: 10 MG/DAILY/PO
     Route: 048
     Dates: start: 20030722, end: 20031011
  2. CENESTIN [Concomitant]
  3. CLARITIN [Concomitant]
  4. COZAAR [Concomitant]
  5. METAMUCIL-2 [Concomitant]
  6. XANAX [Concomitant]
  7. ASPIRIN [Concomitant]
  8. CALCIUM [Concomitant]
  9. FLUCINONIDE [Concomitant]

REACTIONS (1)
  - ALOPECIA [None]
